FAERS Safety Report 6216607-5 (Version None)
Quarter: 2009Q2

REPORT INFORMATION
  Report Type: 
  Country: None (occurrence: None)
  Receive Date: 20090605
  Receipt Date: 20090529
  Transmission Date: 20091009
  Serious: Yes (Other)
  Sender: FDA-Public Use
  Company Number: PHHY2009CA21408

PATIENT

DRUGS (2)
  1. RASILEZ [Suspect]
     Indication: HYPERTENSION
  2. AVAPRO [Interacting]

REACTIONS (3)
  - BLOOD POTASSIUM INCREASED [None]
  - DRUG INTERACTION [None]
  - RENAL IMPAIRMENT [None]
